FAERS Safety Report 5289675-5 (Version None)
Quarter: 2007Q2

REPORT INFORMATION
  Report Type: 
  Country: None (occurrence: None)
  Receive Date: 20070406
  Receipt Date: 20070328
  Transmission Date: 20071010
  Serious: Yes (Death)
  Sender: FDA-Public Use
  Company Number: DE-AVENTIS-200710822DE

PATIENT
  Sex: Male

DRUGS (4)
  1. TRENTAL [Suspect]
     Indication: RETINAL ARTERY OCCLUSION
     Route: 048
     Dates: start: 20060101, end: 20060101
  2. TRENTAL [Suspect]
     Route: 048
     Dates: start: 20060101, end: 20060101
  3. CLEXANE [Suspect]
     Indication: RETINAL ARTERY OCCLUSION
     Dates: start: 20060101, end: 20060101
  4. ASPIRIN [Concomitant]
     Indication: RETINAL ARTERY OCCLUSION
     Dosage: DOSE: NOT REPORTED
     Dates: start: 20060101, end: 20060101

REACTIONS (1)
  - CEREBRAL HAEMORRHAGE [None]
